FAERS Safety Report 4279952-9 (Version None)
Quarter: 2004Q1

REPORT INFORMATION
  Report Type: 
  Country: None (occurrence: None)
  Receive Date: 20040126
  Receipt Date: 20040116
  Transmission Date: 20041129
  Serious: Yes (Death, Hospitalization, Other)
  Sender: FDA-Public Use
  Company Number: 2002137782CA

PATIENT
  Age: 45 Year
  Sex: Female
  Weight: 63.5 kg

DRUGS (9)
  1. UNIDET (TOLTERODINE) CAPSULE, PROLONGED RELEASE [Suspect]
     Indication: URINARY INCONTINENCE
     Dosage: 4 MG, QD, ORAL
     Route: 048
     Dates: end: 20021111
  2. LOVENOX [Suspect]
     Indication: THROMBOSIS
     Dosage: SUBCUTANEOUS
     Route: 058
     Dates: start: 20021101
  3. EFFEXOR [Concomitant]
  4. ALTACE [Concomitant]
  5. ZOCOR [Concomitant]
  6. SURFAK [Concomitant]
  7. ENTROPHEN [Concomitant]
  8. METOPROLOL [Concomitant]
  9. ATIVAN [Concomitant]

REACTIONS (6)
  - ACUTE MYOCARDIAL INFARCTION [None]
  - BRAIN HERNIATION [None]
  - CEREBRAL HAEMORRHAGE [None]
  - HYDROCEPHALUS [None]
  - INTRAVENTRICULAR HAEMORRHAGE [None]
  - THROMBOSIS [None]
